FAERS Safety Report 22246822 (Version 2)
Quarter: 2023Q2

REPORT INFORMATION
  Report Type: Report from Study
  Country: HU (occurrence: None)
  Receive Date: 20230424
  Receipt Date: 20230515
  Transmission Date: 20230721
  Serious: Yes (Hospitalization)
  Sender: FDA-Public Use
  Company Number: HU-Eisai Medical Research-EC-2023-135975

PATIENT
  Age: 52 Year
  Sex: Female
  Weight: 78 kg

DRUGS (14)
  1. LENVATINIB [Suspect]
     Active Substance: LENVATINIB
     Indication: Clear cell renal cell carcinoma
     Dosage: STARTING DOSE AT 20MG (FLUCTUATED DOSE)
     Route: 048
     Dates: start: 20221110, end: 20230307
  2. PEMBROLIZUMAB [Suspect]
     Active Substance: PEMBROLIZUMAB
     Indication: Clear cell renal cell carcinoma
     Route: 041
     Dates: start: 20221110, end: 20221222
  3. DIOSMIN\HESPERIDIN [Concomitant]
     Active Substance: DIOSMIN\HESPERIDIN
     Dates: start: 202110, end: 20230307
  4. FERROUS SULFATE [Concomitant]
     Active Substance: FERROUS SULFATE
     Dates: start: 202205
  5. PANTOPRAZOLE [Concomitant]
     Active Substance: PANTOPRAZOLE
     Dates: start: 20230103
  6. MEDROL [Concomitant]
     Active Substance: METHYLPREDNISOLONE
     Dates: start: 20230215, end: 20230322
  7. CATAFLAM [Concomitant]
     Active Substance: DICLOFENAC POTASSIUM
     Dates: start: 20230227, end: 20230308
  8. LENDIN [Concomitant]
     Dates: start: 20230306
  9. CLOSANASOL [Concomitant]
     Dates: start: 20230306
  10. MOMETASONE FUROATE [Concomitant]
     Active Substance: MOMETASONE FUROATE
     Dates: start: 20230306
  11. TRAMADOL HYDROCHLORIDE [Concomitant]
     Active Substance: TRAMADOL HYDROCHLORIDE
     Dates: start: 20230227, end: 20230308
  12. PREGABALIN [Concomitant]
     Active Substance: PREGABALIN
     Dates: start: 20230306, end: 20230308
  13. MYDETON [TOLPERISONE HYDROCHLORIDE] [Concomitant]
     Dates: start: 20230306, end: 20230308
  14. DICLOFENAC SODIUM\ORPHENADRINE CITRATE [Concomitant]
     Active Substance: DICLOFENAC SODIUM\ORPHENADRINE CITRATE
     Dates: start: 20230306, end: 20230306

REACTIONS (1)
  - Acute kidney injury [Not Recovered/Not Resolved]

NARRATIVE: CASE EVENT DATE: 20230307
